FAERS Safety Report 5050844-0 (Version None)
Quarter: 2006Q3

REPORT INFORMATION
  Report Type: 
  Country: None (occurrence: None)
  Receive Date: 20060710
  Receipt Date: 20060626
  Transmission Date: 20061208
  Serious: Yes (Other)
  Sender: FDA-Public Use
  Company Number: CHNY2006AU01940

PATIENT
  Age: 59 Year
  Sex: Male

DRUGS (11)
  1. ALPHAPHARM QUITX   (NICOTINE) [Suspect]
     Dosage: 21 MG, QD, TRANSDERMAL
     Route: 062
     Dates: start: 20060618, end: 20060620
  2. ADALAT [Concomitant]
  3. MINAX         (METOPROLOL TARTRATE) [Concomitant]
  4. ZANTAC [Concomitant]
  5. MORPINE (MORPHINE) [Concomitant]
  6. LIORESAL [Concomitant]
  7. DUCENE          (DIAZEPAM) [Concomitant]
  8. DEPTRAN (DOXEPIN HYDROCHLORIDE) [Concomitant]
  9. DIAMICRON (GLICLAZIDE) [Concomitant]
  10. ACETAMINOPHEN [Concomitant]
  11. FUROSEMIDE [Concomitant]

REACTIONS (6)
  - ABDOMINAL DISTENSION [None]
  - BLOOD PRESSURE DECREASED [None]
  - CAROTID PULSE ABNORMAL [None]
  - FEELING ABNORMAL [None]
  - TREATMENT NONCOMPLIANCE [None]
  - VOMITING [None]
